FAERS Safety Report 9356505 (Version 2)
Quarter: 2013Q3

REPORT INFORMATION
  Report Type: Spontaneous
  Country: US (occurrence: US)
  Receive Date: 20130619
  Receipt Date: 20130802
  Transmission Date: 20140515
  Serious: Yes (Hospitalization, Other)
  Sender: FDA-Public Use
  Company Number: US-BAXTER-2013BAX021709

PATIENT
  Sex: Male

DRUGS (1)
  1. DIANEAL LOW CALCIUM [Suspect]
     Indication: PERITONEAL DIALYSIS
     Route: 033

REACTIONS (5)
  - Haematemesis [Recovered/Resolved]
  - Cystitis [Recovered/Resolved]
  - Ulcer haemorrhage [Recovered/Resolved]
  - Prostatomegaly [Recovered/Resolved]
  - Thrombosis [Recovered/Resolved]
